FAERS Safety Report 18601625 (Version 2)
Quarter: 2021Q2

REPORT INFORMATION
  Report Type: Spontaneous
  Country: US (occurrence: US)
  Receive Date: 20201210
  Receipt Date: 20210525
  Transmission Date: 20210717
  Serious: Yes (Other)
  Sender: FDA-Public Use
  Company Number: US-ASTRAZENECA-2020SF61372

PATIENT
  Age: 26469 Day
  Sex: Male
  Weight: 74.8 kg

DRUGS (27)
  1. TRIMETHOPRIM. [Concomitant]
     Active Substance: TRIMETHOPRIM
     Dates: start: 2015, end: 2021
  2. DORZOLAMIDE [Concomitant]
     Active Substance: DORZOLAMIDE
  3. DICYCLOMINE [Concomitant]
     Active Substance: DICYCLOMINE HYDROCHLORIDE
     Indication: OESOPHAGEAL SPASM
  4. MULTI VITAMIN [Concomitant]
     Active Substance: VITAMINS
     Indication: SUPPLEMENTATION THERAPY
     Dates: start: 2010
  5. SIMVASTATIN. [Concomitant]
     Active Substance: SIMVASTATIN
  6. PRILOSEC [Suspect]
     Active Substance: OMEPRAZOLE MAGNESIUM
     Indication: GASTROOESOPHAGEAL REFLUX DISEASE
     Dosage: GENERIC, 20 MG 3 DAYS A WEEK MONDAY WEDNESDAY AND FRIDAY
     Route: 065
     Dates: start: 2016
  7. FLUTICASONE. [Concomitant]
     Active Substance: FLUTICASONE
  8. TACROLIMUS. [Concomitant]
     Active Substance: TACROLIMUS
     Dates: start: 2015, end: 2021
  9. TRAVATAN [Concomitant]
     Active Substance: TRAVOPROST
  10. TIMOLOL. [Concomitant]
     Active Substance: TIMOLOL
  11. CREON [Concomitant]
     Active Substance: PANCRELIPASE AMYLASE\PANCRELIPASE LIPASE\PANCRELIPASE PROTEASE
  12. SODIUM BICARBONATE. [Concomitant]
     Active Substance: SODIUM BICARBONATE
     Indication: HEART RATE IRREGULAR
     Dates: start: 2015, end: 2021
  13. ELIQUIS [Concomitant]
     Active Substance: APIXABAN
     Indication: ANTICOAGULANT THERAPY
     Dates: start: 202010
  14. LORATIDINE [Concomitant]
     Active Substance: LORATADINE
     Indication: HYPERSENSITIVITY
     Dates: start: 2010
  15. ZENPEP [Concomitant]
     Active Substance: PANCRELIPASE AMYLASE\PANCRELIPASE LIPASE\PANCRELIPASE PROTEASE
  16. NEXIUM [Suspect]
     Active Substance: ESOMEPRAZOLE MAGNESIUM
     Indication: GASTROOESOPHAGEAL REFLUX DISEASE
     Route: 048
     Dates: start: 2000
  17. ALLOPURINOL. [Concomitant]
     Active Substance: ALLOPURINOL
     Indication: GOUT
     Dates: start: 2014, end: 2021
  18. NEXIUM [Suspect]
     Active Substance: ESOMEPRAZOLE MAGNESIUM
     Indication: GASTROOESOPHAGEAL REFLUX DISEASE
     Route: 048
     Dates: start: 2011, end: 2016
  19. LIPITOR [Concomitant]
     Active Substance: ATORVASTATIN CALCIUM
     Indication: BLOOD CHOLESTEROL ABNORMAL
     Dates: start: 202010
  20. FUROSEMIDE. [Concomitant]
     Active Substance: FUROSEMIDE
     Dates: start: 2015, end: 2021
  21. METOPROLOL. [Concomitant]
     Active Substance: METOPROLOL
     Indication: ARRHYTHMIA
     Dates: start: 202010
  22. IRON SULFATE [Concomitant]
     Active Substance: FERROUS SULFATE ANHYDROUS
     Indication: MINERAL SUPPLEMENTATION
     Dates: start: 2010
  23. VITAMIN B12 [Concomitant]
     Active Substance: CYANOCOBALAMIN
     Indication: SUPPLEMENTATION THERAPY
     Dates: start: 2010
  24. AMLODIPINE BESYLAT [Concomitant]
     Active Substance: AMLODIPINE BESYLATE
  25. PRILOSEC [Suspect]
     Active Substance: OMEPRAZOLE MAGNESIUM
     Indication: GASTROOESOPHAGEAL REFLUX DISEASE
     Route: 048
     Dates: start: 1990, end: 2016
  26. AMOXICILLIN. [Concomitant]
     Active Substance: AMOXICILLIN
  27. LATANOPROST. [Concomitant]
     Active Substance: LATANOPROST

REACTIONS (6)
  - Renal failure [Unknown]
  - Acute kidney injury [Recovered/Resolved]
  - Pancreatic carcinoma [Unknown]
  - End stage renal disease [Recovered/Resolved]
  - Rebound acid hypersecretion [Unknown]
  - Chronic kidney disease [Recovered/Resolved]

NARRATIVE: CASE EVENT DATE: 20130517
